FAERS Safety Report 6997417-8 (Version None)
Quarter: 2010Q3

REPORT INFORMATION
  Report Type: 
  Country: None (occurrence: None)
  Receive Date: 20100918
  Receipt Date: 20091012
  Transmission Date: 20110219
  Serious: No
  Sender: FDA-Public Use
  Company Number: US-WYE-H11564109

PATIENT
  Sex: Male
  Weight: 122.58 kg

DRUGS (3)
  1. PRISTIQ [Suspect]
     Indication: DEPRESSION
     Route: 048
     Dates: start: 20091010, end: 20091010
  2. PRISTIQ [Suspect]
     Route: 048
     Dates: start: 20091011
  3. XANAX [Concomitant]

REACTIONS (7)
  - AFFECT LABILITY [None]
  - AGGRESSION [None]
  - ANGER [None]
  - DIZZINESS [None]
  - HYPERHIDROSIS [None]
  - NAUSEA [None]
  - PSYCHOMOTOR HYPERACTIVITY [None]
